FAERS Safety Report 9312382 (Version 1)
Quarter: 2013Q2

REPORT INFORMATION
  Report Type: Spontaneous
  Country: NL (occurrence: NL)
  Receive Date: 20130528
  Receipt Date: 20130528
  Transmission Date: 20140414
  Serious: Yes (Other)
  Sender: FDA-Public Use
  Company Number: NL-AMGEN-NLDSP2013037699

PATIENT
  Sex: Female

DRUGS (4)
  1. ENBREL [Suspect]
     Indication: RHEUMATOID ARTHRITIS
     Dosage: 50 MG, WEEKLY
     Dates: start: 2009, end: 201305
  2. METHOTREXATE [Concomitant]
     Dosage: 3X/WEEK
  3. SIMVASTATIN [Concomitant]
     Dosage: UNK
  4. THYRAX                             /00068001/ [Concomitant]
     Dosage: UNK

REACTIONS (3)
  - Renal cyst [Unknown]
  - Respiratory tract infection [Unknown]
  - Influenza [Unknown]
